FAERS Safety Report 17248074 (Version 2)
Quarter: 2020Q1

REPORT INFORMATION
  Report Type: Spontaneous
  Country: US (occurrence: US)
  Receive Date: 20200108
  Receipt Date: 20200130
  Transmission Date: 20200409
  Serious: No
  Sender: FDA-Public Use
  Company Number: US-ASTRAZENECA-2019SF82979

PATIENT
  Sex: Female

DRUGS (1)
  1. BYDUREON [Suspect]
     Active Substance: EXENATIDE
     Dosage: 2.0MG UNKNOWN
     Route: 058

REACTIONS (7)
  - Nervousness [Unknown]
  - Anger [Unknown]
  - Intentional product misuse [Unknown]
  - Fatigue [Unknown]
  - Blood glucose increased [Unknown]
  - Hyperhidrosis [Unknown]
  - Product physical issue [Unknown]
